FAERS Safety Report 4836223-7 (Version None)
Quarter: 2005Q4

REPORT INFORMATION
  Report Type: 
  Country: None (occurrence: None)
  Receive Date: 20051123
  Receipt Date: 20051111
  Transmission Date: 20060501
  Serious: Yes (Death, Hospitalization)
  Sender: FDA-Public Use
  Company Number: PHBS2005DE16781

PATIENT
  Age: 61 Year
  Sex: Male

DRUGS (5)
  1. CYCLOSPORINE [Suspect]
     Indication: LIVER TRANSPLANT
     Route: 065
  2. AZATHIOPRINE [Suspect]
     Indication: LIVER TRANSPLANT
     Dosage: 125 MG/D
     Route: 065
  3. METHYLPREDNISOLONE [Suspect]
     Indication: LIVER TRANSPLANT
     Dosage: 40 MG/D
     Route: 065
  4. COTRIM [Concomitant]
  5. TRIMETHOPRIM [Concomitant]
     Dosage: 160 MG, Q48H
     Route: 065

REACTIONS (28)
  - ALANINE AMINOTRANSFERASE INCREASED [None]
  - ANURIA [None]
  - ASCITES [None]
  - ASPARTATE AMINOTRANSFERASE INCREASED [None]
  - BLOOD ALKALINE PHOSPHATASE INCREASED [None]
  - BLOOD BILIRUBIN INCREASED [None]
  - BLOOD CREATININE INCREASED [None]
  - BLOOD LACTATE DEHYDROGENASE INCREASED [None]
  - CARDIAC FAILURE [None]
  - CHOLESTASIS [None]
  - GAMMA-GLUTAMYLTRANSFERASE INCREASED [None]
  - HAEMODIALYSIS [None]
  - HEPATIC FAILURE [None]
  - HEPATITIS CHOLESTATIC [None]
  - HEPATITIS VIRAL [None]
  - HERPES SIMPLEX [None]
  - LIVER FUNCTION TEST ABNORMAL [None]
  - LIVER TRANSPLANT [None]
  - MULTI-ORGAN FAILURE [None]
  - OEDEMA DUE TO HEPATIC DISEASE [None]
  - PNEUMONIA BACTERIAL [None]
  - PORTAL VEIN OCCLUSION [None]
  - PORTAL VEIN STENOSIS [None]
  - PORTAL VEIN THROMBOSIS [None]
  - RESPIRATORY FAILURE [None]
  - TRACHEAL ULCER [None]
  - TRACHEOBRONCHITIS VIRAL [None]
  - VIRAL DNA TEST POSITIVE [None]
